FAERS Safety Report 5711319-6 (Version None)
Quarter: 2008Q2

REPORT INFORMATION
  Report Type: 
  Country: None (occurrence: None)
  Receive Date: 20080418
  Receipt Date: 20080418
  Transmission Date: 20081010
  Serious: Yes (Death, Hospitalization)
  Sender: FDA-Public Use
  Company Number: None

PATIENT
  Sex: Female
  Weight: 75.8 kg

DRUGS (3)
  1. ELLENCE [Suspect]
     Dosage: 185 MG
     Dates: end: 20061229
  2. CYCLOPHOSPHAMIDE [Suspect]
     Dosage: 925 MG
     Dates: end: 20061229
  3. FLUOROURACIL [Suspect]
     Dosage: 925 MG
     Dates: end: 20061229

REACTIONS (1)
  - CARDIOMYOPATHY [None]
